FAERS Safety Report 6170501-7 (Version None)
Quarter: 2009Q2

REPORT INFORMATION
  Report Type: 
  Country: None (occurrence: None)
  Receive Date: 20090427
  Receipt Date: 20090427
  Transmission Date: 20091009
  Serious: Yes (Life-Threatening, Hospitalization)
  Sender: FDA-Public Use
  Company Number: None

PATIENT
  Sex: Male
  Weight: 56.8 kg

DRUGS (12)
  1. TACROLIMUS [Suspect]
     Indication: IMMUNOSUPPRESSANT DRUG THERAPY
     Dosage: 6 MG PO Q12H
     Route: 048
  2. TACROLIMUS [Suspect]
     Indication: LIVER TRANSPLANT
     Dosage: 6 MG PO Q12H
     Route: 048
  3. SIROLIMUS [Suspect]
     Dosage: 4 MG PO DAILY
     Route: 048
  4. BENADRYL [Concomitant]
  5. DILAUDID [Concomitant]
  6. ATARAX [Concomitant]
  7. NOVOLOG [Concomitant]
  8. INSULATARD NPH HUMAN [Concomitant]
  9. ATIVAN [Concomitant]
  10. MORPHINE [Concomitant]
  11. CELLCEPT [Concomitant]
  12. RAPAMUNE [Concomitant]

REACTIONS (3)
  - BLOOD CREATININE INCREASED [None]
  - LIVER TRANSPLANT REJECTION [None]
  - TREATMENT NONCOMPLIANCE [None]
